FAERS Safety Report 6672026-9 (Version None)
Quarter: 2010Q2

REPORT INFORMATION
  Report Type: 
  Country: None (occurrence: None)
  Receive Date: 20100406
  Receipt Date: 20100322
  Transmission Date: 20101027
  Serious: Yes (Hospitalization)
  Sender: FDA-Public Use
  Company Number: DSM-2010-00490

PATIENT
  Age: 74 Year
  Sex: Female

DRUGS (2)
  1. OPENVAS PLUS (HYDROCHLOROTHIAZIDE, OLMESARTAN MEDOXOMIL) (TABLET) (HYD [Suspect]
     Indication: HYPERTENSION
     Dosage: 20/12.5 MG (1 IN 1 D),ORAL
     Route: 048
     Dates: start: 20050501, end: 20090529
  2. DOBUPAL RETARD (VENLAFAXINE HYDROCHLORIDE) (150 MILLIGRAM, PROLONGED-R [Suspect]
     Indication: MAJOR DEPRESSION
     Dosage: 150 MG (150 MG,1 IN 1 D),ORAL
     Route: 048
     Dates: start: 20051014, end: 20090529

REACTIONS (2)
  - DRUG INTERACTION [None]
  - HYPONATRAEMIA [None]
